FAERS Safety Report 9463175 (Version 1)
Quarter: 2013Q3

REPORT INFORMATION
  Report Type: Spontaneous
  Country: CN (occurrence: CN)
  Receive Date: 20130817
  Receipt Date: 20130817
  Transmission Date: 20140515
  Serious: Yes (Other)
  Sender: FDA-Public Use
  Company Number: CN-JNJFOC-20130802188

PATIENT
  Age: 3 Year
  Sex: Female
  Weight: 14 kg

DRUGS (1)
  1. MOTRIN [Suspect]
     Indication: ACCIDENTAL EXPOSURE TO PRODUCT
     Route: 048
     Dates: start: 20130623, end: 20130623

REACTIONS (3)
  - Body temperature decreased [Recovered/Resolved]
  - Accidental exposure to product by child [Recovered/Resolved]
  - Hyperhidrosis [Recovered/Resolved]
